FAERS Safety Report 9127519 (Version 1)
Quarter: 2013Q1

REPORT INFORMATION
  Report Type: Spontaneous
  Country: US (occurrence: US)
  Receive Date: 20130228
  Receipt Date: 20130228
  Transmission Date: 20140127
  Serious: No
  Sender: FDA-Public Use
  Company Number: US-GLAXOSMITHKLINE-A0981834A

PATIENT
  Age: 35 Year
  Sex: Female

DRUGS (2)
  1. LAMOTRIGINE [Suspect]
     Indication: BIPOLAR DISORDER
     Route: 048
     Dates: start: 201206, end: 20120617
  2. TRAZODONE [Concomitant]
     Indication: SLEEP DISORDER

REACTIONS (9)
  - Drug eruption [Not Recovered/Not Resolved]
  - Rash [Not Recovered/Not Resolved]
  - Pyrexia [Unknown]
  - Oropharyngeal pain [Unknown]
  - Paraesthesia oral [Unknown]
  - Rash papular [Not Recovered/Not Resolved]
  - Skin discolouration [Unknown]
  - Skin burning sensation [Unknown]
  - Pain of skin [Unknown]
